FAERS Safety Report 8379599-9 (Version None)
Quarter: 2012Q1

REPORT INFORMATION
  Report Type: 
  Country: None (occurrence: None)
  Receive Date: 20120323
  Receipt Date: 20110407
  Transmission Date: 20120608
  Serious: Yes (Disabling)
  Sender: FDA-Public Use
  Company Number: 163-21880-11040907

PATIENT
  Age: 66 Year
  Sex: Female

DRUGS (4)
  1. TRAMADOL HCL [Concomitant]
  2. VELCADE [Concomitant]
  3. REVLIMID [Suspect]
     Indication: MULTIPLE MYELOMA
     Dosage: 10 MG, DAILY X 21 DAYS, PO
     Route: 048
     Dates: start: 20110326
  4. CITALOPRAM HYDROBROMIDE (CITALOPRAM HYDROBROMIDE)(UNKNOWN) [Concomitant]

REACTIONS (2)
  - FATIGUE [None]
  - RASH [None]
